FAERS Safety Report 16074256 (Version 1)
Quarter: 2019Q1

REPORT INFORMATION
  Report Type: Report from Study
  Country: BR (occurrence: BR)
  Receive Date: 20190314
  Receipt Date: 20190314
  Transmission Date: 20190418
  Serious: Yes (Hospitalization, Other)
  Sender: FDA-Public Use
  Company Number: PHHY2018BR001738

PATIENT
  Age: 49 Year
  Sex: Female
  Weight: 76 kg

DRUGS (5)
  1. BONVIVA [Concomitant]
     Active Substance: IBANDRONATE SODIUM
     Indication: PRODUCT USED FOR UNKNOWN INDICATION
     Route: 065
  2. ALENDRONATE [Suspect]
     Active Substance: ALENDRONATE SODIUM
     Indication: OSTEOPOROSIS
     Dosage: QW (WEEKLY)
     Route: 065
  3. RISEDRONATE [Suspect]
     Active Substance: RISEDRONATE SODIUM
     Indication: PRODUCT USED FOR UNKNOWN INDICATION
     Dosage: QMO (MONTHLY)
     Route: 065
  4. ACLASTA [Suspect]
     Active Substance: ZOLEDRONIC ACID
     Dosage: 1 DF, Q12MO (5MG/100ML)
     Route: 042
     Dates: start: 201805
  5. ACLASTA [Suspect]
     Active Substance: ZOLEDRONIC ACID
     Indication: OSTEOPOROSIS
     Dosage: 1 DF, Q12MO (5MG/100ML)
     Route: 042
     Dates: start: 2008

REACTIONS (20)
  - Bone pain [Unknown]
  - Nodule [Unknown]
  - Drug level increased [Recovered/Resolved]
  - Rheumatoid arthritis [Unknown]
  - Bone disorder [Not Recovered/Not Resolved]
  - Bone deformity [Unknown]
  - Spinal deformity [Recovered/Resolved]
  - Asthenia [Unknown]
  - Gait disturbance [Unknown]
  - Bone marrow disorder [Unknown]
  - Thoracic vertebral fracture [Unknown]
  - Drug intolerance [Unknown]
  - Dyspepsia [Unknown]
  - Condition aggravated [Unknown]
  - Body height decreased [Unknown]
  - Body height increased [Unknown]
  - Back pain [Recovered/Resolved]
  - Nausea [Unknown]
  - Vomiting [Unknown]
  - Osteoporosis [Unknown]

NARRATIVE: CASE EVENT DATE: 2008
